FAERS Safety Report 9022270 (Version 1)
Quarter: 2013Q1

REPORT INFORMATION
  Report Type: Spontaneous
  Country: BR (occurrence: BR)
  Receive Date: 20130118
  Receipt Date: 20130118
  Transmission Date: 20140127
  Serious: Yes (Other)
  Sender: FDA-Public Use
  Company Number: PHHY2013BR004460

PATIENT
  Age: 65 Year
  Sex: Female

DRUGS (1)
  1. DIOVAN [Suspect]
     Indication: HYPERTENSION
     Dosage: 1 DF, (320 MG) DAILY
     Route: 048
     Dates: start: 2007

REACTIONS (3)
  - Breast cancer [Unknown]
  - Hypertension [Unknown]
  - Blood pressure inadequately controlled [Unknown]
